FAERS Safety Report 5026044-7 (Version None)
Quarter: 2006Q2

REPORT INFORMATION
  Report Type: 
  Country: None (occurrence: None)
  Receive Date: 20060427
  Receipt Date: 20051214
  Transmission Date: 20061013
  Serious: Yes (Other)
  Sender: FDA-Public Use
  Company Number: US-JNJFOC-20051204226

PATIENT
  Age: 84 Year
  Sex: Female

DRUGS (2)
  1. RAZADYNE (GALANTAMINE HBR) TABLETS [Suspect]
     Indication: DRUG USE FOR UNKNOWN INDICATION
     Dosage: ORAL
     Route: 048
     Dates: end: 20050101
  2. NAMENDA [Suspect]
     Indication: DRUG USE FOR UNKNOWN INDICATION
     Dates: end: 20050101

REACTIONS (1)
  - GASTROINTESTINAL HAEMORRHAGE [None]
